FAERS Safety Report 4923605-8 (Version None)
Quarter: 2006Q1

REPORT INFORMATION
  Report Type: 
  Country: None (occurrence: None)
  Receive Date: 20060221
  Receipt Date: 20060206
  Transmission Date: 20060701
  Serious: Yes (Hospitalization)
  Sender: FDA-Public Use
  Company Number: 2006019284

PATIENT
  Age: 67 Year
  Sex: Male

DRUGS (2)
  1. CAVERJECT [Suspect]
     Indication: ILL-DEFINED DISORDER
     Dosage: 20 MCG
  2. THYROID HORMONES [Concomitant]

REACTIONS (1)
  - CATARACT OPERATION [None]
